FAERS Safety Report 14090535 (Version 1)
Quarter: 2017Q4

REPORT INFORMATION
  Report Type: Spontaneous
  Country: US (occurrence: US)
  Receive Date: 20171015
  Receipt Date: 20171015
  Transmission Date: 20180321
  Serious: Yes (Hospitalization, Other)
  Sender: FDA-Public Use
  Company Number: US-BRISTOL-MYERS SQUIBB COMPANY-BMS-2017-090963

PATIENT
  Sex: Female

DRUGS (1)
  1. ELIQUIS [Suspect]
     Active Substance: APIXABAN
     Indication: CEREBROVASCULAR ACCIDENT PROPHYLAXIS
     Dosage: UNK
     Route: 065
     Dates: start: 201507, end: 20160112

REACTIONS (5)
  - Splenic rupture [Unknown]
  - Acute kidney injury [Unknown]
  - Internal haemorrhage [Unknown]
  - Peritoneal haemorrhage [Unknown]
  - Respiratory failure [Unknown]

NARRATIVE: CASE EVENT DATE: 20160112
